FAERS Safety Report 8462686-4 (Version None)
Quarter: 2012Q2

REPORT INFORMATION
  Report Type: 
  Country: None (occurrence: None)
  Receive Date: 20120625
  Receipt Date: 20120620
  Transmission Date: 20120825
  Serious: Yes (Other)
  Sender: FDA-Public Use
  Company Number: AU-ROCHE-1043200

PATIENT
  Sex: Female

DRUGS (4)
  1. ASPIRIN [Concomitant]
  2. FISH OIL [Concomitant]
  3. AVASTIN [Concomitant]
  4. LUCENTIS [Suspect]
     Indication: AGE-RELATED MACULAR DEGENERATION
     Route: 050
     Dates: start: 20111001

REACTIONS (7)
  - CONJUNCTIVAL HAEMORRHAGE [None]
  - VISUAL IMPAIRMENT [None]
  - MACULAR DEGENERATION [None]
  - RETINAL DETACHMENT [None]
  - DRUG INEFFECTIVE [None]
  - OCULAR HYPERAEMIA [None]
  - EYE PAIN [None]
